FAERS Safety Report 8322941 (Version 6)
Quarter: 2013Q2

REPORT INFORMATION
  Report Type: Report from Study
  Country: TH (occurrence: TH)
  Receive Date: 20120105
  Receipt Date: 20130614
  Transmission Date: 20140414
  Serious: Yes (Hospitalization, Other)
  Sender: FDA-Public Use
  Company Number: TH-JNJFOC-20120100575

PATIENT
  Age: 34 Year
  Sex: Male
  Weight: 74.6 kg

DRUGS (10)
  1. INVEGA SUSTENNA [Suspect]
     Indication: SCHIZOPHRENIA
     Route: 030
     Dates: start: 20110906
  2. BETAMETHASONE [Concomitant]
     Route: 065
     Dates: start: 20110830, end: 20110830
  3. LORAZEPAM [Concomitant]
     Indication: AGITATION
     Route: 065
     Dates: start: 20110107
  4. LORAZEPAM [Concomitant]
     Indication: AGITATION
     Route: 065
     Dates: start: 20110920, end: 20111227
  5. LORAZEPAM [Concomitant]
     Indication: INSOMNIA
     Route: 065
     Dates: start: 20110107
  6. LORAZEPAM [Concomitant]
     Indication: INSOMNIA
     Route: 065
     Dates: start: 20110920, end: 20111227
  7. TRIHEXYPHENIDYL [Concomitant]
     Indication: EXTRAPYRAMIDAL DISORDER
     Route: 065
     Dates: start: 20110920, end: 20111227
  8. TRIHEXYPHENIDYL [Concomitant]
     Indication: EXTRAPYRAMIDAL DISORDER
     Route: 065
     Dates: start: 20110107
  9. TRIHEXYPHENIDYL [Concomitant]
     Indication: EXTRAPYRAMIDAL DISORDER
     Route: 065
     Dates: start: 20110830, end: 20110920
  10. DRAMAMINE [Concomitant]
     Indication: NAUSEA
     Route: 065
     Dates: start: 20110927, end: 20111018

REACTIONS (2)
  - Psychotic disorder [Recovered/Resolved]
  - Aggression [Recovered/Resolved]
